FAERS Safety Report 5052071-X (Version None)
Quarter: 2006Q3

REPORT INFORMATION
  Report Type: 
  Country: None (occurrence: None)
  Receive Date: 20060711
  Receipt Date: 20060628
  Transmission Date: 20061208
  Serious: Yes (Other)
  Sender: FDA-Public Use
  Company Number: A-JP2005-10177

PATIENT
  Age: 57 Year
  Sex: Female
  Weight: 35 kg

DRUGS (16)
  1. TRACLEER [Suspect]
     Indication: PULMONARY HYPERTENSION
     Dosage: 31.25 MG BID ORAL
     Route: 048
     Dates: start: 20050627, end: 20050628
  2. EPOPROSTENOL SODIUM [Concomitant]
  3. DILTIAZEM HYDROCHLORIDE [Concomitant]
  4. ZOLPIDEM TARTRATE [Concomitant]
  5. SODIUM AZULENE SULFONATE AND L-GLUTAMINE [Concomitant]
  6. BETAMETHASONE [Concomitant]
  7. URSODEOXYCHOLIC ACID [Concomitant]
  8. ENALAPRIL MALEATE [Concomitant]
  9. REBAMIPIDE [Concomitant]
  10. OMEPRAZOLE [Concomitant]
  11. FUROSEMIDE [Concomitant]
  12. HYALURONATE SODIUM [Concomitant]
  13. CYANOCOBALAMIN [Concomitant]
  14. TRANILAST [Concomitant]
  15. DOBUTAMINE HCL [Concomitant]
  16. OXYGEN [Concomitant]

REACTIONS (6)
  - BLOOD PRESSURE DECREASED [None]
  - CONDITION AGGRAVATED [None]
  - DIZZINESS [None]
  - HEPATOMEGALY [None]
  - RIGHT VENTRICULAR FAILURE [None]
  - WEIGHT INCREASED [None]
